FAERS Safety Report 5609418-2 (Version None)
Quarter: 2008Q1

REPORT INFORMATION
  Report Type: 
  Country: None (occurrence: None)
  Receive Date: 20080131
  Receipt Date: 20080123
  Transmission Date: 20080703
  Serious: Yes (Hospitalization)
  Sender: FDA-Public Use
  Company Number: ES-ROCHE-387111

PATIENT
  Age: 58 Year
  Sex: Female
  Weight: 74.5 kg

DRUGS (21)
  1. DACLIZUMAB [Suspect]
     Dosage: FORM: VIALS.
     Route: 042
     Dates: start: 20041019
  2. DACLIZUMAB [Suspect]
     Route: 042
  3. DACLIZUMAB [Suspect]
     Route: 042
  4. MYCOPHENOLATE MOFETIL [Suspect]
     Route: 048
     Dates: start: 20041019
  5. SIROLIMUS [Suspect]
     Route: 048
     Dates: start: 20041019
  6. SIROLIMUS [Suspect]
     Route: 048
     Dates: start: 20050912
  7. STEROIDS NOS [Suspect]
     Route: 048
     Dates: start: 20041019
  8. PREDNISONE TAB [Suspect]
     Indication: DRUG USE FOR UNKNOWN INDICATION
     Route: 048
     Dates: start: 20041019
  9. PREDNISONE TAB [Suspect]
     Route: 048
     Dates: start: 20041114
  10. OMEPRAZOLE [Concomitant]
     Route: 048
     Dates: start: 20041020
  11. COTRIMOXAZOLE [Concomitant]
     Dosage: TDD REPORTED AS 80/450 MG.
     Route: 048
     Dates: start: 20041020
  12. FUROSEMIDE [Concomitant]
     Dates: start: 20041114
  13. FUROSEMIDE [Concomitant]
     Dates: start: 20050627
  14. FUROSEMIDE [Concomitant]
     Dates: start: 20050915
  15. DOXAZOSIN MESYLATE [Concomitant]
     Dates: start: 20050223
  16. ATORVASTATIN CALCIUM [Concomitant]
     Dates: start: 20050223
  17. ATORVASTATIN CALCIUM [Concomitant]
     Dates: start: 20050418
  18. ATENOLOL [Concomitant]
     Dates: start: 20050627
  19. CALCIUM CARBONATE [Concomitant]
     Dates: start: 20041114
  20. CALCIUM CARBONATE [Concomitant]
     Dates: start: 20051211
  21. CALCIUM NOS [Concomitant]
     Dates: start: 20041114

REACTIONS (3)
  - HERPES OPHTHALMIC [None]
  - INTESTINAL OBSTRUCTION [None]
  - URINARY TRACT INFECTION [None]
